FAERS Safety Report 4937476-7 (Version None)
Quarter: 2006Q1

REPORT INFORMATION
  Report Type: 
  Country: None (occurrence: None)
  Receive Date: 20060309
  Receipt Date: 20060228
  Transmission Date: 20060701
  Serious: Yes (Other)
  Sender: FDA-Public Use
  Company Number: PHEH2006US02778

PATIENT

DRUGS (1)
  1. ZELNORM [Suspect]

REACTIONS (1)
  - ARRHYTHMIA [None]
